FAERS Safety Report 15186327 (Version 1)
Quarter: 2018Q3

REPORT INFORMATION
  Report Type: Report from Study
  Country: US (occurrence: US)
  Receive Date: 20180723
  Receipt Date: 20180723
  Transmission Date: 20181010
  Serious: Yes (Death, Hospitalization)
  Sender: FDA-Public Use
  Company Number: US-EXELIXIS-CABO-17011726

PATIENT
  Age: 47 Year
  Sex: Female

DRUGS (24)
  1. ENOXAPARIN [Concomitant]
     Active Substance: ENOXAPARIN
  2. LORAZEPAM. [Concomitant]
     Active Substance: LORAZEPAM
  3. ACETAMINOPHEN. [Concomitant]
     Active Substance: ACETAMINOPHEN
  4. ONDANSETRON [Concomitant]
     Active Substance: ONDANSETRON
  5. CYANOCOBALAMIN. [Concomitant]
     Active Substance: CYANOCOBALAMIN
  6. CALCIUM [Concomitant]
     Active Substance: CALCIUM
  7. MORPHINE [Concomitant]
     Active Substance: MORPHINE
  8. GUAIFENESIN. [Concomitant]
     Active Substance: GUAIFENESIN
  9. CABOMETYX [Suspect]
     Active Substance: CABOZANTINIB S-MALATE
     Dosage: 60 MG, QD
     Route: 048
  10. LEVALBUTEROL. [Concomitant]
     Active Substance: LEVALBUTEROL
  11. CHOLECALCIFEROL [Concomitant]
     Active Substance: CHOLECALCIFEROL
  12. FUROSEMIDE. [Concomitant]
     Active Substance: FUROSEMIDE
  13. AZITHROMYCIN ANHYDROUS. [Concomitant]
     Active Substance: AZITHROMYCIN ANHYDROUS
  14. TRAZODONE [Concomitant]
     Active Substance: TRAZODONE HYDROCHLORIDE
  15. BACTRIM DS [Concomitant]
     Active Substance: SULFAMETHOXAZOLE\TRIMETHOPRIM
  16. ASCORBIC ACID. [Concomitant]
     Active Substance: ASCORBIC ACID
  17. MULTIVITAMINS W/FLUORIDE [Concomitant]
  18. CABOMETYX [Suspect]
     Active Substance: CABOZANTINIB S-MALATE
     Indication: RENAL CANCER
     Dosage: 60 MG, QD
     Route: 048
     Dates: start: 20171001
  19. IPRATROPIUM [Concomitant]
     Active Substance: IPRATROPIUM
  20. FLUTICASONE. [Concomitant]
     Active Substance: FLUTICASONE
  21. FOLIC ACID. [Concomitant]
     Active Substance: FOLIC ACID
  22. PREDNISONE. [Concomitant]
     Active Substance: PREDNISONE
  23. VALACYCLOVIR [Concomitant]
     Active Substance: VALACYCLOVIR HYDROCHLORIDE
  24. MELATONIN [Concomitant]
     Active Substance: MELATONIN

REACTIONS (3)
  - Abdominal pain [Unknown]
  - Malignant neoplasm progression [Fatal]
  - Diarrhoea [Unknown]

NARRATIVE: CASE EVENT DATE: 20171218
